FAERS Safety Report 10135897 (Version 2)
Quarter: 2014Q2

REPORT INFORMATION
  Report Type: Spontaneous
  Country: JP (occurrence: JP)
  Receive Date: 20140429
  Receipt Date: 20140515
  Transmission Date: 20141212
  Serious: Yes (Disabling)
  Sender: FDA-Public Use
  Company Number: JP-009507513-1404JPN013728

PATIENT
  Sex: 0

DRUGS (1)
  1. ZETIA TABLETS 10MG [Suspect]
     Dosage: DOSAGE IS UNCERTAIN DURING A DAY
     Route: 048

REACTIONS (1)
  - Lichen planus [Not Recovered/Not Resolved]
